FAERS Safety Report 24239917 (Version 2)
Quarter: 2024Q4

REPORT INFORMATION
  Report Type: Spontaneous
  Country: MA (occurrence: MA)
  Receive Date: 20240822
  Receipt Date: 20241016
  Transmission Date: 20250115
  Serious: Yes (Death, Hospitalization)
  Sender: BIOMARIN
  Company Number: MA-SA-SAC20240819000931

PATIENT

DRUGS (13)
  1. LARONIDASE [Suspect]
     Active Substance: LARONIDASE
     Indication: Mucopolysaccharidosis I
     Dosage: 100 UI/KG QW
     Route: 042
     Dates: start: 20230601, end: 20240602
  2. LARONIDASE [Suspect]
     Active Substance: LARONIDASE
     Dosage: 100 UI/KG QW
     Route: 042
     Dates: start: 20180222
  3. LARONIDASE [Suspect]
     Active Substance: LARONIDASE
     Dosage: 100 UI/KG QW
     Route: 042
     Dates: start: 202305, end: 20240602
  4. AZITHROMYCIN [Concomitant]
     Active Substance: AZITHROMYCIN
     Indication: Product used for unknown indication
  5. ALDACTONE [Concomitant]
     Active Substance: SPIRONOLACTONE
     Indication: Product used for unknown indication
  6. SILDENAFIL [Concomitant]
     Active Substance: SILDENAFIL
     Indication: Product used for unknown indication
     Dosage: UNK
  7. POTASSIUM CHLORIDE [Concomitant]
     Active Substance: POTASSIUM CHLORIDE
     Indication: Product used for unknown indication
     Dosage: UNK
  8. PULMICORT TURBUHALER [Concomitant]
     Active Substance: BUDESONIDE
     Indication: Product used for unknown indication
     Dosage: UNK
  9. VALPROATE SODIUM [Concomitant]
     Active Substance: VALPROATE SODIUM
     Indication: Product used for unknown indication
     Dosage: UNK
  10. FUROSEMIDE [Concomitant]
     Active Substance: FUROSEMIDE
     Indication: Product used for unknown indication
     Dosage: UNK
  11. CEFTAZIDIME [Concomitant]
     Active Substance: CEFTAZIDIME
     Indication: Product used for unknown indication
     Dosage: UNK
     Dates: start: 202402
  12. AMIKACIN [Concomitant]
     Active Substance: AMIKACIN
     Indication: Product used for unknown indication
     Dosage: UNK
  13. ALBUMIN (LJUDSKI) 20% [Concomitant]
     Indication: Product used for unknown indication

REACTIONS (3)
  - Disease progression [Fatal]
  - Respiratory disorder [Fatal]
  - Infection [Fatal]
